FAERS Safety Report 9234651 (Version 1)
Quarter: 2013Q2

REPORT INFORMATION
  Report Type: Spontaneous
  Country: US (occurrence: US)
  Receive Date: 20130416
  Receipt Date: 20130416
  Transmission Date: 20140414
  Serious: Yes (Other)
  Sender: FDA-Public Use
  Company Number: US-ASTRAZENECA-2013SE24198

PATIENT
  Age: 52 Year
  Sex: Female
  Weight: 95.3 kg

DRUGS (7)
  1. SEROQUEL [Suspect]
     Indication: INSOMNIA
     Route: 048
     Dates: start: 2010
  2. SEROQUEL [Suspect]
     Indication: DEPRESSION
     Route: 048
     Dates: start: 2010
  3. SEROQUEL [Suspect]
     Indication: BIPOLAR DISORDER
     Route: 048
     Dates: start: 2010
  4. PRAVASTATIN [Concomitant]
  5. PHENOFIBRATE [Concomitant]
  6. LEVOTHYROXINE [Concomitant]
     Indication: THYROID DISORDER
  7. DEPAKOTE [Concomitant]

REACTIONS (7)
  - Weight increased [Unknown]
  - Food craving [Unknown]
  - Hepatic enzyme increased [Unknown]
  - Nausea [Unknown]
  - Constipation [Unknown]
  - Blood cholesterol increased [Unknown]
  - Vomiting [Unknown]
